FAERS Safety Report 5738271-1 (Version None)
Quarter: 2008Q2

REPORT INFORMATION
  Report Type: 
  Country: None (occurrence: None)
  Receive Date: 20080514
  Receipt Date: 20080508
  Transmission Date: 20081010
  Serious: Yes (Hospitalization)
  Sender: FDA-Public Use
  Company Number: GB-PFIZER INC-2008040417

PATIENT
  Age: 19 Year
  Sex: Male

DRUGS (3)
  1. CHANTIX [Suspect]
     Indication: SMOKING CESSATION THERAPY
     Route: 048
     Dates: start: 20080211, end: 20080401
  2. TRAMADOL HCL [Concomitant]
  3. ZOPICLONE [Concomitant]

REACTIONS (2)
  - DEPRESSION [None]
  - PARANOIA [None]
